FAERS Safety Report 4882104-2 (Version None)
Quarter: 2006Q1

REPORT INFORMATION
  Report Type: 
  Country: None (occurrence: None)
  Receive Date: 20060113
  Receipt Date: 20060113
  Transmission Date: 20060701
  Serious: Yes (Death)
  Sender: FDA-Public Use
  Company Number: None

PATIENT
  Sex: Female

DRUGS (2)
  1. LAMIVUDINE [Suspect]
     Indication: HIV INFECTION
     Dosage: 300 MG DAILY ORALLY
     Route: 048
     Dates: start: 20041001, end: 20050601
  2. STAVUDINE [Suspect]
     Indication: HIV INFECTION
     Dosage: 40 MG Q12H ORALLY
     Route: 048
     Dates: start: 20050101, end: 20050601

REACTIONS (5)
  - CARDIAC ARREST [None]
  - PANCREATITIS [None]
  - TACHYCARDIA [None]
  - TACHYPNOEA [None]
  - THERAPY NON-RESPONDER [None]
